FAERS Safety Report 5878226-X (Version None)
Quarter: 2008Q3

REPORT INFORMATION
  Report Type: 
  Country: None (occurrence: None)
  Receive Date: 20080911
  Receipt Date: 20080909
  Transmission Date: 20090109
  Serious: Yes (Life-Threatening, Hospitalization)
  Sender: FDA-Public Use
  Company Number: BR-ASTRAZENECA-2008UW18638

PATIENT
  Age: 38 Year
  Sex: Female

DRUGS (4)
  1. BUPIVACAINE [Suspect]
     Dosage: 2.5 MG OF 0.5% HEAVY BUPIVACAINE
     Route: 037
  2. BUPIVACAINE [Suspect]
     Dosage: 0.5% - 2.5 MG
     Route: 008
  3. FENTANYL [Suspect]
     Dosage: 20 UG
     Route: 037
  4. FENTANYL [Suspect]
     Dosage: 20 UG
     Route: 008

REACTIONS (14)
  - AGITATION [None]
  - ANAPHYLACTOID SYNDROME OF PREGNANCY [None]
  - BLOOD PRESSURE IMMEASURABLE [None]
  - DISSEMINATED INTRAVASCULAR COAGULATION [None]
  - HYPERSENSITIVITY [None]
  - HYPOTENSION [None]
  - NAUSEA [None]
  - OXYGEN SATURATION DECREASED [None]
  - PALLOR [None]
  - PRURITUS [None]
  - SEPTIC SHOCK [None]
  - TACHYCARDIA [None]
  - TACHYPNOEA [None]
  - VOMITING [None]
